FAERS Safety Report 5179243-8 (Version None)
Quarter: 2006Q4

REPORT INFORMATION
  Report Type: 
  Country: None (occurrence: None)
  Receive Date: 20061219
  Receipt Date: 20061209
  Transmission Date: 20070319
  Serious: Yes (Other)
  Sender: FDA-Public Use
  Company Number: PHRM2006FR03300

PATIENT
  Age: 79 Year
  Sex: Male

DRUGS (1)
  1. LESCOL [Suspect]
     Route: 048

REACTIONS (3)
  - FATIGUE [None]
  - MUSCULOSKELETAL PAIN [None]
  - MYALGIA [None]
